FAERS Safety Report 8251124-2 (Version None)
Quarter: 2012Q2

REPORT INFORMATION
  Report Type: 
  Country: None (occurrence: None)
  Receive Date: 20120402
  Receipt Date: 20120329
  Transmission Date: 20120825
  Serious: Yes (Other)
  Sender: FDA-Public Use
  Company Number: TT-BAYER-2012-031292

PATIENT
  Age: 53 Year
  Sex: Male

DRUGS (1)
  1. ULTRAVIST 150 [Suspect]
     Indication: CORONARY ARTERY DISEASE
     Dosage: UNK
     Dates: start: 20120301

REACTIONS (5)
  - HYPOTENSION [None]
  - TREMOR [None]
  - MUSCLE TWITCHING [None]
  - PERIPHERAL COLDNESS [None]
  - HYPERSENSITIVITY [None]
